FAERS Safety Report 5907977-3 (Version None)
Quarter: 2008Q4

REPORT INFORMATION
  Report Type: 
  Country: None (occurrence: None)
  Receive Date: 20081003
  Receipt Date: 20080923
  Transmission Date: 20090506
  Serious: Yes (Other)
  Sender: FDA-Public Use
  Company Number: DK-PFIZER INC-2008075214

PATIENT
  Sex: Female

DRUGS (4)
  1. LYRICA [Suspect]
     Indication: ANXIETY
     Route: 048
     Dates: start: 20080826
  2. LYRICA [Suspect]
     Dosage: TEXT:BID DAILY TDD:450MG
     Dates: start: 20080829
  3. SERDOLECT [Concomitant]
     Route: 048
     Dates: start: 20071101
  4. CIPRALEX [Concomitant]
     Route: 048
     Dates: start: 20071101

REACTIONS (2)
  - ACCOMMODATION DISORDER [None]
  - DYSKINESIA [None]
